FAERS Safety Report 9598659 (Version 1)
Quarter: 2013Q4

REPORT INFORMATION
  Report Type: Spontaneous
  Country: US (occurrence: US)
  Receive Date: 20131004
  Receipt Date: 20131004
  Transmission Date: 20140711
  Serious: No
  Sender: FDA-Public Use
  Company Number: US-AMGEN-USASP2013025369

PATIENT
  Age: 53 Year
  Sex: Female
  Weight: 95.24 kg

DRUGS (9)
  1. ENBREL [Suspect]
     Indication: PRODUCT USED FOR UNKNOWN INDICATION
     Dosage: 50 MG, QWK
     Route: 058
  2. SIMVASTIN [Concomitant]
     Dosage: 20 MG, UNK
  3. ARTHROTEC [Concomitant]
     Dosage: 50 UNK, UNK
  4. GLYBURIDE [Concomitant]
     Dosage: 5 MG, UNK
  5. ASPIRIN LOW [Concomitant]
     Dosage: 81 MG, EC
  6. ATENOLOL [Concomitant]
     Dosage: 25 MG, UNK
  7. METFORMIN [Concomitant]
     Dosage: 500 MG, UNK
  8. PROTONIX [Concomitant]
     Dosage: 20 MG, UNK
  9. PREDNISONE [Concomitant]
     Dosage: 1 MG, UNK

REACTIONS (2)
  - Therapeutic response decreased [Unknown]
  - Urinary tract infection [Unknown]
